FAERS Safety Report 4573776-0 (Version None)
Quarter: 2005Q1

REPORT INFORMATION
  Report Type: 
  Country: None (occurrence: None)
  Receive Date: 20050203
  Receipt Date: 20050119
  Transmission Date: 20050727
  Serious: Yes (Other)
  Sender: FDA-Public Use
  Company Number: 207749

PATIENT
  Age: 57 Year
  Sex: Female
  Weight: 56.6996 kg

DRUGS (4)
  1. AVONEX [Suspect]
     Indication: MULTIPLE SCLEROSIS
     Dosage: 30 UG; QW; IM
     Route: 030
     Dates: start: 20041007
  2. TRILEPTAL [Concomitant]
  3. RITALIN [Concomitant]
  4. DIAZEPAM [Concomitant]

REACTIONS (5)
  - DEPRESSION [None]
  - INFLUENZA LIKE ILLNESS [None]
  - MUSCLE SPASMS [None]
  - PAIN IN EXTREMITY [None]
  - PYREXIA [None]
